FAERS Safety Report 9579906 (Version 1)
Quarter: 2013Q3

REPORT INFORMATION
  Report Type: Spontaneous
  Country: GB (occurrence: None)
  Receive Date: 20130930
  Receipt Date: 20130930
  Transmission Date: 20140515
  Serious: Yes (Congenital Anomaly)
  Sender: FDA-Public Use
  Company Number: GB-ALKEM-000145

PATIENT
  Sex: Female
  Weight: 3 kg

DRUGS (2)
  1. QUETIAPINE (QUETIAPINE) [Suspect]
     Indication: BIPOLAR DISORDER
     Route: 064
  2. DIAZEPAM (DIAZEPAM) [Concomitant]

REACTIONS (2)
  - Congenital hand malformation [None]
  - Maternal drugs affecting foetus [None]
